FAERS Safety Report 10771804 (Version 1)
Quarter: 2015Q1

REPORT INFORMATION
  Report Type: Spontaneous
  Country: US (occurrence: US)
  Receive Date: 20150206
  Receipt Date: 20150206
  Transmission Date: 20150721
  Serious: Yes (Other)
  Sender: FDA-Public Use
  Company Number: PHEH2014US023774

PATIENT
  Age: 39 Year
  Sex: Male
  Weight: 96.4 kg

DRUGS (1)
  1. TOBI PODHALER [Suspect]
     Active Substance: TOBRAMYCIN
     Indication: PRODUCT USED FOR UNKNOWN INDICATION
     Dosage: 112 MG, BID (4 CAPSULE PER DAY)
     Route: 055
     Dates: start: 20130906, end: 20131001

REACTIONS (3)
  - Tinnitus [Recovered/Resolved]
  - Deafness [Recovered/Resolved]
  - Vertigo [Recovered/Resolved]

NARRATIVE: CASE EVENT DATE: 20131001
